FAERS Safety Report 7514778-1 (Version None)
Quarter: 2011Q2

REPORT INFORMATION
  Report Type: 
  Country: None (occurrence: None)
  Receive Date: 20110526
  Receipt Date: 20110526
  Transmission Date: 20111010
  Serious: Yes (Other)
  Sender: FDA-Public Use
  Company Number: None

PATIENT
  Age: 16 Year
  Sex: Male
  Weight: 71.2147 kg

DRUGS (1)
  1. TEGRETOL [Suspect]
     Dosage: 200MG PO TID
     Route: 048
     Dates: start: 20040601, end: 20050101

REACTIONS (2)
  - HYPERSOMNIA [None]
  - ACTIVITIES OF DAILY LIVING IMPAIRED [None]
